FAERS Safety Report 6902128-0 (Version None)
Quarter: 2010Q3

REPORT INFORMATION
  Report Type: 
  Country: None (occurrence: None)
  Receive Date: 20100803
  Receipt Date: 20100730
  Transmission Date: 20110219
  Serious: Yes (Hospitalization)
  Sender: FDA-Public Use
  Company Number: US-GILEAD-2010-0030774

PATIENT
  Sex: Male
  Weight: 90.8 kg

DRUGS (7)
  1. LETAIRIS [Suspect]
     Indication: PULMONARY ARTERIAL HYPERTENSION
     Route: 048
     Dates: start: 20091214
  2. REVATIO [Concomitant]
     Dates: start: 20090505
  3. CAPTOPRIL [Concomitant]
  4. WARFARIN SODIUM [Concomitant]
  5. SPIRONOLACTONE [Concomitant]
  6. MUCINEX [Concomitant]
  7. NEXIUM [Concomitant]

REACTIONS (1)
  - COLLAPSE OF LUNG [None]
